FAERS Safety Report 6221854-2 (Version None)
Quarter: 2009Q2

REPORT INFORMATION
  Report Type: 
  Country: None (occurrence: None)
  Receive Date: 20090609
  Receipt Date: 20090526
  Transmission Date: 20091009
  Serious: Yes (Hospitalization, Disabling)
  Sender: FDA-Public Use
  Company Number: 2008-188696-NL

PATIENT
  Age: 38 Year
  Sex: Female
  Weight: 68 kg

DRUGS (5)
  1. NUVARING [Suspect]
     Indication: CONTRACEPTION
     Dates: start: 20031101, end: 20041020
  2. NUVARING [Suspect]
     Indication: MENSTRUAL DISORDER
     Dates: start: 20031101, end: 20041020
  3. IBUPROFEN [Concomitant]
  4. ALLEGRA [Concomitant]
  5. CELEXA [Concomitant]

REACTIONS (18)
  - BACK PAIN [None]
  - CARPAL TUNNEL SYNDROME [None]
  - DIZZINESS [None]
  - FALL [None]
  - HYPERVENTILATION [None]
  - HYPOAESTHESIA [None]
  - HYPOPHOSPHATAEMIA [None]
  - HYPOTHYROIDISM [None]
  - INJURY [None]
  - PARAESTHESIA [None]
  - PLEURITIC PAIN [None]
  - PULMONARY EMBOLISM [None]
  - PULMONARY INFARCTION [None]
  - SYNCOPE [None]
  - TACHYCARDIA [None]
  - TEMPERATURE INTOLERANCE [None]
  - THORACIC OUTLET SYNDROME [None]
  - WEIGHT INCREASED [None]
